FAERS Safety Report 5994414-6 (Version None)
Quarter: 2008Q4

REPORT INFORMATION
  Report Type: 
  Country: None (occurrence: None)
  Receive Date: 20081212
  Receipt Date: 20080909
  Transmission Date: 20090506
  Serious: No
  Sender: FDA-Public Use
  Company Number: US-ABBOTT-08P-163-0475176-00

PATIENT
  Sex: Male

DRUGS (1)
  1. HUMIRA [Suspect]
     Indication: CROHN'S DISEASE
     Dates: start: 20080905

REACTIONS (4)
  - CHEST PAIN [None]
  - DYSPEPSIA [None]
  - INFLUENZA LIKE ILLNESS [None]
  - PYREXIA [None]
